FAERS Safety Report 16250697 (Version 5)
Quarter: 2019Q3

REPORT INFORMATION
  Report Type: Spontaneous
  Country: JP (occurrence: JP)
  Receive Date: 20190429
  Receipt Date: 20190912
  Transmission Date: 20191004
  Serious: Yes (Life-Threatening, Hospitalization)
  Sender: FDA-Public Use
  Company Number: JP-EISAI MEDICAL RESEARCH-EC-2019-055729

PATIENT
  Age: 20 Year
  Sex: Female
  Weight: 40 kg

DRUGS (10)
  1. E KEPPRA [Concomitant]
     Active Substance: LEVETIRACETAM
     Indication: LAFORA^S MYOCLONIC EPILEPSY
     Route: 050
     Dates: start: 20181206
  2. TRICLORYL [Concomitant]
     Active Substance: TRICLOFOS SODIUM
     Indication: TENSION
     Route: 050
  3. FYCOMPA [Suspect]
     Active Substance: PERAMPANEL
     Indication: LAFORA^S MYOCLONIC EPILEPSY
     Route: 050
     Dates: start: 20180718, end: 2018
  4. EXCEGRAN [Suspect]
     Active Substance: ZONISAMIDE
     Indication: LAFORA^S MYOCLONIC EPILEPSY
     Route: 050
     Dates: start: 20170104
  5. PHENOBAL [Suspect]
     Active Substance: PHENOBARBITAL
     Indication: LAFORA^S MYOCLONIC EPILEPSY
     Route: 050
     Dates: start: 20181206, end: 20190107
  6. SODIUM VALPROATE [Concomitant]
     Active Substance: VALPROATE SODIUM
     Indication: LAFORA^S MYOCLONIC EPILEPSY
     Route: 050
  7. MYSTAN [Concomitant]
     Active Substance: CLOBAZAM
     Indication: LAFORA^S MYOCLONIC EPILEPSY
     Route: 050
  8. FYCOMPA [Suspect]
     Active Substance: PERAMPANEL
     Dosage: UP-TITRATION DOSE AND FREQUENCY UNKNOWN
     Route: 050
     Dates: start: 2018, end: 2018
  9. FYCOMPA [Suspect]
     Active Substance: PERAMPANEL
     Route: 050
     Dates: start: 2018, end: 20190301
  10. MYOCALM [Concomitant]
     Active Substance: HERBALS\MINERALS\VITAMINS
     Indication: TENSION
     Route: 050

REACTIONS (1)
  - Drug reaction with eosinophilia and systemic symptoms [Recovered/Resolved]

NARRATIVE: CASE EVENT DATE: 20181230
